FAERS Safety Report 7853239-7 (Version None)
Quarter: 2011Q4

REPORT INFORMATION
  Report Type: 
  Country: None (occurrence: None)
  Receive Date: 20111026
  Receipt Date: 20111019
  Transmission Date: 20120403
  Serious: Yes (Disabling, Other)
  Sender: FDA-Public Use
  Company Number: US-MERCK-1103USA02688

PATIENT
  Age: 65 Year
  Sex: Female
  Weight: 68 kg

DRUGS (2)
  1. ACTONEL [Suspect]
     Indication: OSTEOPOROSIS
     Route: 048
  2. FOSAMAX [Suspect]
     Indication: OSTEOPOROSIS
     Route: 048
     Dates: end: 20100101

REACTIONS (12)
  - SINUS DISORDER [None]
  - ORAL HERPES [None]
  - BONE DISORDER [None]
  - PARKINSON'S DISEASE [None]
  - OSTEOMYELITIS [None]
  - COUGH [None]
  - HYPOTENSION [None]
  - HYPOTHYROIDISM [None]
  - ANXIETY [None]
  - FOOT FRACTURE [None]
  - ARTHRITIS [None]
  - OSTEONECROSIS OF JAW [None]
